FAERS Safety Report 8552847-8 (Version None)
Quarter: 2012Q3

REPORT INFORMATION
  Report Type: 
  Country: None (occurrence: None)
  Receive Date: 20120731
  Receipt Date: 20120726
  Transmission Date: 20120928
  Serious: Yes (Hospitalization, Other)
  Sender: FDA-Public Use
  Company Number: PHHO2012DE010952

PATIENT
  Sex: Male
  Weight: 74 kg

DRUGS (4)
  1. EVEROLIMUS [Suspect]
     Indication: NON-SMALL CELL LUNG CANCER
     Dosage: 1 DF, QD
     Route: 048
     Dates: start: 20120622, end: 20120719
  2. ENOXAPARIN SODIUM [Concomitant]
     Indication: ATRIAL FIBRILLATION
     Dosage: UNK
     Dates: start: 20110622
  3. SORAFENIB [Suspect]
     Indication: NON-SMALL CELL LUNG CANCER
     Dosage: UNK
     Route: 048
     Dates: start: 20120706, end: 20120719
  4. LEVOTHYROXINE SODIUM [Concomitant]
     Indication: THYROIDECTOMY

REACTIONS (1)
  - COLON NEOPLASM [None]
